FAERS Safety Report 23051600 (Version 1)
Quarter: 2023Q4

REPORT INFORMATION
  Report Type: Spontaneous
  Country: US (occurrence: US)
  Receive Date: 20231010
  Receipt Date: 20231010
  Transmission Date: 20240110
  Serious: No
  Sender: FDA-Public Use
  Company Number: US-Sprout Pharmaceuticals, Inc.-2022SP000325

PATIENT
  Sex: Female
  Weight: 65.83 kg

DRUGS (2)
  1. ADDYI [Suspect]
     Active Substance: FLIBANSERIN
     Indication: Libido decreased
     Dosage: AT BEDTIME
     Route: 048
  2. Women^s multivitamin [Concomitant]
     Indication: Product used for unknown indication

REACTIONS (1)
  - Migraine [Recovered/Resolved]
